FAERS Safety Report 20901422 (Version 3)
Quarter: 2022Q2

REPORT INFORMATION
  Report Type: Spontaneous
  Country: JP (occurrence: JP)
  Receive Date: 20220601
  Receipt Date: 20220623
  Transmission Date: 20220720
  Serious: Yes (Life-Threatening, Hospitalization)
  Sender: FDA-Public Use
  Company Number: JP-CHUGAI-2022019786

PATIENT
  Age: 8 Decade
  Sex: Male

DRUGS (2)
  1. TECENTRIQ [Suspect]
     Active Substance: ATEZOLIZUMAB
     Indication: Hepatocellular carcinoma
     Dosage: 1200 MILLIGRAM, ONCE/3WEEKS
     Route: 041
     Dates: start: 20220128, end: 20220426
  2. AVASTIN [Suspect]
     Active Substance: BEVACIZUMAB
     Indication: Hepatocellular carcinoma
     Dosage: 1000 MILLIGRAM, SINGLE?MOST RECENT DOSE: 28/JAN/2022
     Route: 041
     Dates: start: 20220128

REACTIONS (6)
  - Oedema [Unknown]
  - Malaise [Recovering/Resolving]
  - Proteinuria [Unknown]
  - Hypoaesthesia [Recovered/Resolved]
  - Chest pain [Recovering/Resolving]
  - Ascites [Not Recovered/Not Resolved]

NARRATIVE: CASE EVENT DATE: 20220506
